FAERS Safety Report 15061014 (Version 1)
Quarter: 2018Q2

REPORT INFORMATION
  Report Type: Spontaneous
  Country: US (occurrence: US)
  Receive Date: 20180625
  Receipt Date: 20180625
  Transmission Date: 20180711
  Serious: No
  Sender: FDA-Public Use
  Company Number: US-ROCHE-1978912

PATIENT
  Age: 67 Year
  Sex: Male

DRUGS (2)
  1. CAPECITABINE. [Suspect]
     Active Substance: CAPECITABINE
     Indication: URETHRAL CANCER METASTATIC
     Route: 048
  2. OXALIPLATIN. [Suspect]
     Active Substance: OXALIPLATIN
     Indication: URETHRAL CANCER METASTATIC
     Route: 042

REACTIONS (3)
  - Neuropathy peripheral [Unknown]
  - Performance status decreased [Unknown]
  - Neutropenia [Unknown]
